FAERS Safety Report 10039860 (Version 1)
Quarter: 2014Q1

REPORT INFORMATION
  Report Type: Spontaneous
  Country: GB (occurrence: GB)
  Receive Date: 20140326
  Receipt Date: 20140326
  Transmission Date: 20141002
  Serious: Yes (Disabling)
  Sender: FDA-Public Use
  Company Number: GB-JNJFOC-20140311846

PATIENT
  Age: 65 Year
  Sex: Female
  Weight: 79.7 kg

DRUGS (12)
  1. XARELTO [Suspect]
     Indication: THROMBOPHLEBITIS SUPERFICIAL
     Route: 048
     Dates: start: 20140130, end: 20140304
  2. IBUPROFEN [Concomitant]
     Route: 065
  3. PARACETAMOL [Concomitant]
     Route: 065
  4. FLUTICASONE [Concomitant]
     Route: 065
  5. AMLODIPINE [Concomitant]
     Route: 065
  6. VALACICLOVIR [Concomitant]
     Route: 065
  7. CLONIDINE [Concomitant]
     Route: 065
  8. METFORMIN [Concomitant]
     Route: 065
  9. PHENOXYMETHYL PENICILLIN [Concomitant]
     Route: 065
  10. SALBUTAMOL [Concomitant]
     Route: 065
  11. FENOFIBRATE [Concomitant]
     Route: 065
  12. LISINOPRIL [Concomitant]
     Route: 065

REACTIONS (1)
  - Mouth ulceration [Not Recovered/Not Resolved]
